FAERS Safety Report 23354469 (Version 2)
Quarter: 2024Q1

REPORT INFORMATION
  Report Type: Spontaneous
  Country: JP (occurrence: None)
  Receive Date: 20240101
  Receipt Date: 20240213
  Transmission Date: 20240410
  Serious: Yes (Hospitalization)
  Sender: FDA-Public Use
  Company Number: 2023A294934

PATIENT
  Age: 81 Year
  Weight: 35 kg

DRUGS (9)
  1. ONDEXXYA [Suspect]
     Active Substance: ANDEXANET ALFA
     Indication: Haemorrhage intracranial
     Dosage: 800 MG (IV) ? 960 MG (DIV)
     Route: 042
     Dates: start: 20231217, end: 20231217
  2. ONDEXXYA [Suspect]
     Active Substance: ANDEXANET ALFA
     Indication: Subarachnoid haemorrhage
     Dosage: 800 MG (IV) ? 960 MG (DIV)
     Route: 042
     Dates: start: 20231217, end: 20231217
  3. ACTARIT [Concomitant]
     Active Substance: ACTARIT
     Dosage: DOSE UNKNOWN
     Route: 048
  4. XARELTO [Concomitant]
     Active Substance: RIVAROXABAN
     Dosage: DOSE UNKNOWN
     Route: 048
  5. NITROFURANTOIN [Concomitant]
     Active Substance: NITROFURANTOIN
     Dosage: DOSE UNKNOWN
     Route: 048
  6. OMEPRAZOLE [Concomitant]
     Active Substance: OMEPRAZOLE
     Dosage: DOSE UNKNOWN
  7. FOSPHENYTOIN SODIUM [Concomitant]
     Active Substance: FOSPHENYTOIN SODIUM
     Dosage: DOSE UNKNOWN
     Route: 042
  8. TRANEXAMIC ACID [Concomitant]
     Active Substance: TRANEXAMIC ACID
     Dosage: DOSE UNKNOWN
  9. NICARDIPINE HYDROCHLORIDE [Concomitant]
     Active Substance: NICARDIPINE HYDROCHLORIDE
     Dosage: DOSE UNKNOWN

REACTIONS (1)
  - Cerebral infarction [Unknown]

NARRATIVE: CASE EVENT DATE: 20231218
